FAERS Safety Report 21787617 (Version 1)
Quarter: 2022Q4

REPORT INFORMATION
  Report Type: Spontaneous
  Country: IT (occurrence: IT)
  Receive Date: 20221228
  Receipt Date: 20221228
  Transmission Date: 20230113
  Serious: Yes (Other)
  Sender: FDA-Public Use
  Company Number: IT-AMGEN-ITASP2022213022

PATIENT
  Age: 16 Year
  Sex: Female

DRUGS (1)
  1. BLINCYTO [Suspect]
     Active Substance: BLINATUMOMAB
     Indication: Acute lymphocytic leukaemia
     Dosage: 15 MICROGRAM/SQUARE METER/KILOGRAM/28 DAYS
     Route: 065

REACTIONS (1)
  - Minimal residual disease [Not Recovered/Not Resolved]
